FAERS Safety Report 7204500-0 (Version None)
Quarter: 2010Q4

REPORT INFORMATION
  Report Type: 
  Country: None (occurrence: None)
  Receive Date: 20101230
  Receipt Date: 20101221
  Transmission Date: 20110411
  Serious: Yes (Other)
  Sender: FDA-Public Use
  Company Number: US-JNJFOC-20101207655

PATIENT
  Age: 1 Year
  Sex: Male

DRUGS (1)
  1. INFANTS MYLICON [Suspect]
     Indication: ACCIDENTAL EXPOSURE
     Dosage: 3/4 A BOTTLE
     Route: 048

REACTIONS (2)
  - ACCIDENTAL DRUG INTAKE BY CHILD [None]
  - ACCIDENTAL OVERDOSE [None]
